FAERS Safety Report 25478736 (Version 1)
Quarter: 2025Q2

REPORT INFORMATION
  Report Type: Spontaneous
  Country: US (occurrence: US)
  Receive Date: 20250625
  Receipt Date: 20250625
  Transmission Date: 20250717
  Serious: No
  Sender: BAYER HEALTHCARE PHARMACEUTICALS INC.
  Company Number: US-BAYER-2025A083804

PATIENT
  Age: 51 Year
  Sex: Female

DRUGS (2)
  1. MIRENA [Suspect]
     Active Substance: LEVONORGESTREL
     Indication: Intrauterine contraception
     Dosage: 20?G/DAY
     Route: 015
     Dates: start: 202103
  2. DUPIXENT [Concomitant]
     Active Substance: DUPILUMAB
     Dates: start: 202503

REACTIONS (2)
  - Eye movement disorder [None]
  - Ocular hyperaemia [None]

NARRATIVE: CASE EVENT DATE: 20250101
